FAERS Safety Report 11111124 (Version 1)
Quarter: 2015Q2

REPORT INFORMATION
  Report Type: Report from Study
  Country: DE (occurrence: DE)
  Receive Date: 20150513
  Receipt Date: 20150513
  Transmission Date: 20150821
  Serious: Yes (Hospitalization)
  Sender: FDA-Public Use
  Company Number: DE-TEVA-561806GER

PATIENT
  Age: 42 Year
  Sex: Female
  Weight: 70 kg

DRUGS (4)
  1. CARBOPLATIN. [Suspect]
     Active Substance: CARBOPLATIN
     Indication: BREAST CANCER FEMALE
     Dosage: LAST DOSE PRIOR TO SAE: 13-APR-2015
     Route: 042
     Dates: start: 20141217
  2. MYOCET [Suspect]
     Active Substance: DOXORUBICIN
     Indication: BREAST CANCER FEMALE
     Dosage: LAST DOSE PRIOR TO SAE: 13-APR-2015
     Route: 042
     Dates: start: 20141217
  3. FERROSANOL [Concomitant]
     Active Substance: FERROUS GLUCONATE
     Dates: start: 20150304
  4. PACLITAXEL. [Suspect]
     Active Substance: PACLITAXEL
     Indication: BREAST CANCER FEMALE
     Dosage: LAST DOSE PRIOR TO SAE: 13-APR-2015
     Route: 042
     Dates: start: 20141217

REACTIONS (1)
  - Noninfective sialoadenitis [Not Recovered/Not Resolved]

NARRATIVE: CASE EVENT DATE: 20150505
